FAERS Safety Report 13456042 (Version 1)
Quarter: 2017Q2

REPORT INFORMATION
  Report Type: Spontaneous
  Country: ES (occurrence: ES)
  Receive Date: 20170418
  Receipt Date: 20170418
  Transmission Date: 20170830
  Serious: Yes (Disabling, Other)
  Sender: FDA-Public Use
  Company Number: PHHY2017ES054437

PATIENT
  Age: 81 Year
  Sex: Male

DRUGS (4)
  1. DASATINIB [Suspect]
     Active Substance: DASATINIB
     Indication: PRODUCT USED FOR UNKNOWN INDICATION
     Route: 065
  2. IMATINIB [Suspect]
     Active Substance: IMATINIB
     Dosage: 300 MG, UNK
     Route: 065
  3. IMATINIB [Suspect]
     Active Substance: IMATINIB
     Indication: PRODUCT USED FOR UNKNOWN INDICATION
     Dosage: 400 MG, UNK
     Route: 065
     Dates: start: 200702
  4. IMATINIB [Suspect]
     Active Substance: IMATINIB
     Dosage: 400 UNK, UNK
     Route: 065

REACTIONS (9)
  - Pleural effusion [Unknown]
  - Drug ineffective [Unknown]
  - Condition aggravated [Unknown]
  - Neurotoxicity [Unknown]
  - Gait disturbance [Unknown]
  - Muscular weakness [Unknown]
  - Toxic neuropathy [Unknown]
  - Atrial fibrillation [Unknown]
  - Fatigue [Unknown]

NARRATIVE: CASE EVENT DATE: 2011
